FAERS Safety Report 15000263 (Version 1)
Quarter: 2018Q2

REPORT INFORMATION
  Report Type: Spontaneous
  Country: BR (occurrence: BR)
  Receive Date: 20180612
  Receipt Date: 20180612
  Transmission Date: 20180711
  Serious: Yes (Hospitalization, Other)
  Sender: FDA-Public Use
  Company Number: BR-GLAXOSMITHKLINE-BR2018GSK101262

PATIENT
  Age: 3 Year
  Sex: Female
  Weight: 13 kg

DRUGS (5)
  1. AEROLIN [Suspect]
     Active Substance: ALBUTEROL
     Indication: ASTHMATIC CRISIS
     Dosage: 3 UNK, QD (PPLICATION(S))
     Route: 055
     Dates: start: 20180417
  2. SERETIDE [Suspect]
     Active Substance: FLUTICASONE PROPIONATE\SALMETEROL XINAFOATE
     Indication: ASTHMATIC CRISIS
     Dosage: UNK
  3. CLENIL [Suspect]
     Active Substance: BECLOMETHASONE DIPROPIONATE
     Indication: ASTHMATIC CRISIS
     Dosage: 2 DF, QD (APPLICATION(S))
     Route: 055
     Dates: start: 20180417
  4. AVAMYS [Suspect]
     Active Substance: FLUTICASONE FUROATE
     Indication: ASTHMATIC CRISIS
     Dosage: 1 DF, QD (APPLICATION(S)
     Dates: start: 20180417
  5. MONTELUKAST [Suspect]
     Active Substance: MONTELUKAST SODIUM
     Indication: ASTHMATIC CRISIS
     Dosage: 1 DF, QD
     Dates: start: 20180417

REACTIONS (4)
  - Overdose [Not Recovered/Not Resolved]
  - Hospitalisation [Recovered/Resolved]
  - Product prescribing issue [Recovered/Resolved]
  - Product use in unapproved indication [Not Recovered/Not Resolved]

NARRATIVE: CASE EVENT DATE: 20180417
